FAERS Safety Report 5143914-X (Version None)
Quarter: 2006Q4

REPORT INFORMATION
  Report Type: 
  Country: None (occurrence: None)
  Receive Date: 20061106
  Receipt Date: 20061030
  Transmission Date: 20070319
  Serious: Yes (Life-Threatening, Hospitalization, Disabling, Other)
  Sender: FDA-Public Use
  Company Number: 2006GB01950

PATIENT
  Age: 80 Year
  Sex: Male

DRUGS (5)
  1. BICALUTAMIDE [Suspect]
     Route: 048
     Dates: start: 20030101, end: 20030814
  2. ATENOLOL [Concomitant]
     Route: 048
  3. LANSOPRAZOLE [Concomitant]
     Route: 048
  4. LOSARTAN POSTASSIUM [Concomitant]
     Route: 048
  5. PREDNISOLONE [Concomitant]

REACTIONS (2)
  - NEUTROPENIA [None]
  - PNEUMONIA [None]
